FAERS Safety Report 16301170 (Version 2)
Quarter: 2019Q2

REPORT INFORMATION
  Report Type: Report from Study
  Country: US (occurrence: US)
  Receive Date: 20190510
  Receipt Date: 20190523
  Transmission Date: 20190711
  Serious: Yes (Death, Hospitalization)
  Sender: FDA-Public Use
  Company Number: US-ACTELION-A-NJ2018-171804

PATIENT
  Age: 63 Year
  Sex: Female

DRUGS (5)
  1. UPTRAVI [Suspect]
     Active Substance: SELEXIPAG
     Dosage: 600 MG, BID
     Route: 048
  2. UPTRAVI [Suspect]
     Active Substance: SELEXIPAG
     Dosage: 200 MG, BID
     Route: 048
  3. ADCIRCA [Suspect]
     Active Substance: TADALAFIL
     Indication: PULMONARY HYPERTENSION
     Dosage: 40 MG, QD
     Route: 065
     Dates: start: 20141008
  4. LETAIRIS [Suspect]
     Active Substance: AMBRISENTAN
     Indication: PULMONARY HYPERTENSION
     Dosage: 10 MG, QD
     Route: 065
     Dates: start: 20140305
  5. UPTRAVI [Suspect]
     Active Substance: SELEXIPAG
     Indication: PULMONARY ARTERIAL HYPERTENSION
     Dosage: 400 MCG, BID
     Route: 048
     Dates: start: 20180409, end: 201905

REACTIONS (14)
  - Pulmonary hypertension [Fatal]
  - Dyspnoea [Unknown]
  - Headache [Unknown]
  - Confusional state [Unknown]
  - Arthralgia [Unknown]
  - Unevaluable event [Unknown]
  - Diarrhoea [Unknown]
  - Disease progression [Fatal]
  - Scleroderma [Fatal]
  - Wound [Recovering/Resolving]
  - Malaise [Unknown]
  - Dehydration [Unknown]
  - Weight decreased [Unknown]
  - Disease complication [Fatal]

NARRATIVE: CASE EVENT DATE: 20180620
